FAERS Safety Report 5584229-5 (Version None)
Quarter: 2008Q1

REPORT INFORMATION
  Report Type: 
  Country: None (occurrence: None)
  Receive Date: 20080108
  Receipt Date: 20071231
  Transmission Date: 20080703
  Serious: Yes (Hospitalization)
  Sender: FDA-Public Use
  Company Number: CA-WYE-H01915408

PATIENT
  Sex: Female

DRUGS (11)
  1. SIROLIMUS [Suspect]
     Indication: PROPHYLAXIS AGAINST TRANSPLANT REJECTION
     Route: 048
     Dates: start: 20070315, end: 20071205
  2. PREDNISONE [Concomitant]
     Indication: PROPHYLAXIS AGAINST TRANSPLANT REJECTION
     Route: 048
     Dates: start: 20070315
  3. ELTROXIN [Concomitant]
     Dosage: UNKNOWN
     Route: 065
     Dates: start: 20070514
  4. SPIRONOLACTONE [Concomitant]
     Dosage: UNKNOWN
     Route: 065
     Dates: start: 20070602
  5. SEPTRA [Concomitant]
     Dosage: UNKNOWN
     Route: 065
     Dates: start: 20070602
  6. NADOLOL [Concomitant]
     Dosage: UNKNOWN
     Route: 065
     Dates: start: 20070402
  7. RABEPRAZOLE SODIUM [Concomitant]
     Dosage: UNKNOWN
     Route: 065
  8. SOLFA [Concomitant]
     Dosage: UNKNOWN
     Route: 065
     Dates: start: 20070702
  9. LANSOPRAZOLE [Concomitant]
     Dosage: UNKNOWN
     Route: 065
  10. MYCOPHENOLATE MOFETIL [Concomitant]
     Indication: PROPHYLAXIS AGAINST TRANSPLANT REJECTION
     Route: 048
     Dates: start: 20070315, end: 20071205
  11. LASIX [Concomitant]
     Dosage: UNKNOWN
     Route: 065
     Dates: start: 20070602

REACTIONS (2)
  - INCISIONAL HERNIA [None]
  - INGUINAL HERNIA, OBSTRUCTIVE [None]
